FAERS Safety Report 5315132-3 (Version None)
Quarter: 2007Q2

REPORT INFORMATION
  Report Type: 
  Country: None (occurrence: None)
  Receive Date: 20070502
  Receipt Date: 20070420
  Transmission Date: 20071010
  Serious: Yes (Hospitalization, Other)
  Sender: FDA-Public Use
  Company Number: US-PFIZER INC-2006122890

PATIENT
  Sex: Female
  Weight: 63.5 kg

DRUGS (6)
  1. CELEBREX [Suspect]
     Indication: OSTEOARTHRITIS
  2. BEXTRA [Suspect]
     Indication: OSTEOARTHRITIS
     Dates: end: 20040601
  3. VIOXX [Suspect]
     Indication: PAIN MANAGEMENT
     Dates: start: 20030701, end: 20040201
  4. VIOXX [Suspect]
     Indication: ARTHRITIS
  5. FLEXERIL [Concomitant]
     Indication: PAIN MANAGEMENT
  6. IBUPROFEN [Concomitant]
     Indication: PAIN MANAGEMENT
     Dates: start: 19911211

REACTIONS (1)
  - ISCHAEMIC STROKE [None]
